FAERS Safety Report 4647770-5 (Version None)
Quarter: 2005Q2

REPORT INFORMATION
  Report Type: 
  Country: None (occurrence: None)
  Receive Date: 20050426
  Receipt Date: 20050415
  Transmission Date: 20051028
  Serious: Yes (Hospitalization)
  Sender: FDA-Public Use
  Company Number: 2005CG00768

PATIENT
  Age: 78 Year
  Sex: Female

DRUGS (1)
  1. IRESSA [Suspect]
     Indication: LUNG NEOPLASM MALIGNANT
     Dosage: 250 MG QD; PO
     Route: 048
     Dates: start: 20041120

REACTIONS (2)
  - ABSCESS LIMB [None]
  - ERYSIPELAS [None]
